FAERS Safety Report 10570832 (Version 1)
Quarter: 2014Q4

REPORT INFORMATION
  Report Type: Spontaneous
  Country: US (occurrence: None)
  Receive Date: 20141106
  Receipt Date: 20141106
  Transmission Date: 20150529
  Serious: No
  Sender: FDA-Public Use
  Company Number: None

PATIENT
  Age: 88 Year
  Sex: Female

DRUGS (2)
  1. LOSARTAN 100 MG TORRENT [Suspect]
     Active Substance: LOSARTAN
  2. LOSARTAN 100 MG LUPIN [Suspect]
     Active Substance: LOSARTAN
     Indication: HYPERTENSION
     Route: 048
     Dates: start: 20141017

REACTIONS (3)
  - Product substitution issue [None]
  - Product quality issue [None]
  - Dizziness [None]

NARRATIVE: CASE EVENT DATE: 20141017
